FAERS Safety Report 16974600 (Version 1)
Quarter: 2019Q4

REPORT INFORMATION
  Report Type: Spontaneous
  Country: US (occurrence: US)
  Receive Date: 20191030
  Receipt Date: 20191030
  Transmission Date: 20200122
  Serious: Yes (Hospitalization, Other)
  Sender: FDA-Public Use
  Company Number: US-MYLANLABS-2019M1102670

PATIENT
  Age: 57 Year
  Sex: Female

DRUGS (3)
  1. KETOROLAC [Suspect]
     Active Substance: KETOROLAC TROMETHAMINE
     Indication: PRODUCT USED FOR UNKNOWN INDICATION
     Route: 042
  2. ENOXAPARIN [Suspect]
     Active Substance: ENOXAPARIN
     Indication: ANTICOAGULANT THERAPY
     Route: 058
  3. HEPARIN [Suspect]
     Active Substance: HEPARIN SODIUM
     Indication: ANTICOAGULANT THERAPY
     Route: 058

REACTIONS (4)
  - Spinal cord compression [Recovering/Resolving]
  - Paraplegia [Not Recovered/Not Resolved]
  - Medication error [Unknown]
  - Spinal epidural haematoma [Recovering/Resolving]
